FAERS Safety Report 12443654 (Version 3)
Quarter: 2017Q1

REPORT INFORMATION
  Report Type: Spontaneous
  Country: US (occurrence: US)
  Receive Date: 20160607
  Receipt Date: 20170215
  Transmission Date: 20170428
  Serious: No
  Sender: FDA-Public Use
  Company Number: US-PFIZER INC-2016278621

PATIENT
  Age: 76 Year
  Sex: Female

DRUGS (2)
  1. IBRANCE [Suspect]
     Active Substance: PALBOCICLIB
     Dosage: 125 MG, UNK
     Dates: start: 20160525
  2. FASLODEX [Concomitant]
     Active Substance: FULVESTRANT
     Dosage: UNK
     Dates: start: 20160525

REACTIONS (13)
  - Decreased appetite [Unknown]
  - Hypersomnia [Unknown]
  - Nasal disorder [Unknown]
  - Bone pain [Unknown]
  - Muscular weakness [Unknown]
  - Diarrhoea [Unknown]
  - Vulval disorder [Unknown]
  - Headache [Unknown]
  - Fatigue [Unknown]
  - Rash pruritic [Unknown]
  - Nausea [Unknown]
  - Stomatitis [Unknown]
  - Dizziness [Unknown]

NARRATIVE: CASE EVENT DATE: 201605
